FAERS Safety Report 5605587-9 (Version None)
Quarter: 2008Q1

REPORT INFORMATION
  Report Type: 
  Country: None (occurrence: None)
  Receive Date: 20080125
  Receipt Date: 20080125
  Transmission Date: 20080703
  Serious: Yes (Other)
  Sender: FDA-Public Use
  Company Number: None

PATIENT
  Sex: Female
  Weight: 87.0906 kg

DRUGS (2)
  1. LOW-OGESTREL-21 [Suspect]
     Indication: DYSMENORRHOEA
     Dosage: 1 TAB PO QD LAST 2 MONTHS
     Route: 048
  2. LOW-OGESTREL-21 [Suspect]
     Indication: MENORRHAGIA
     Dosage: 1 TAB PO QD LAST 2 MONTHS
     Route: 048

REACTIONS (4)
  - HAEMORRHAGE [None]
  - MUSCLE SPASMS [None]
  - PHARMACEUTICAL PRODUCT COMPLAINT [None]
  - THERAPEUTIC RESPONSE UNEXPECTED WITH DRUG SUBSTITUTION [None]
